FAERS Safety Report 5363990-9 (Version None)
Quarter: 2007Q2

REPORT INFORMATION
  Report Type: 
  Country: None (occurrence: None)
  Receive Date: 20070620
  Receipt Date: 20070612
  Transmission Date: 20071010
  Serious: Yes (Other)
  Sender: FDA-Public Use
  Company Number: US-BRISTOL-MYERS SQUIBB COMPANY-13816897

PATIENT
  Sex: Male

DRUGS (2)
  1. ZERIT [Suspect]
  2. VIDEX [Suspect]

REACTIONS (1)
  - HEPATIC CIRRHOSIS [None]
